FAERS Safety Report 11614232 (Version 2)
Quarter: 2016Q1

REPORT INFORMATION
  Report Type: Report from Study
  Country: US (occurrence: US)
  Receive Date: 20151008
  Receipt Date: 20160226
  Transmission Date: 20160525
  Serious: Yes (Other)
  Sender: FDA-Public Use
  Company Number: US-JNJFOC-20151005278

PATIENT
  Sex: Female

DRUGS (6)
  1. IMBRUVICA [Suspect]
     Active Substance: IBRUTINIB
     Indication: CHRONIC LYMPHOCYTIC LEUKAEMIA
     Route: 048
     Dates: start: 20140328
  2. POTASSIUM [Concomitant]
     Active Substance: POTASSIUM
  3. LOSARTAN. [Concomitant]
     Active Substance: LOSARTAN
  4. IMBRUVICA [Suspect]
     Active Substance: IBRUTINIB
     Indication: CHRONIC LYMPHOCYTIC LEUKAEMIA
     Route: 048
     Dates: start: 20150626
  5. OMEPRAZOLE. [Concomitant]
     Active Substance: OMEPRAZOLE
  6. COREG [Concomitant]
     Active Substance: CARVEDILOL

REACTIONS (1)
  - Cardiac failure [Unknown]
